FAERS Safety Report 12203438 (Version 18)
Quarter: 2018Q3

REPORT INFORMATION
  Report Type: Report from Study
  Country: CR (occurrence: CR)
  Receive Date: 20160323
  Receipt Date: 20180831
  Transmission Date: 20181010
  Serious: Yes (Hospitalization, Other)
  Sender: FDA-Public Use
  Company Number: PHHY2016CR036668

PATIENT
  Age: 50 Year
  Sex: Female
  Weight: 91.16 kg

DRUGS (18)
  1. METILDOPA [Concomitant]
     Active Substance: METHYLDOPA
     Indication: HYPERTENSION
     Dosage: 20 MG, BID
     Route: 048
  2. HYDRALAZINE [Concomitant]
     Active Substance: HYDRALAZINE HYDROCHLORIDE
     Dosage: 25 MG, BID (1 TABLET IN MORNING AND 1 AT NIGHT)
     Route: 048
  3. AMLODIPINE [Concomitant]
     Active Substance: AMLODIPINE BESYLATE
     Indication: HYPERTENSION
     Dosage: 1 DF, BID  (1 IN MORNING AND 1 AT NIGHT)
     Route: 048
  4. SANDOSTATIN LAR DEPOT [Suspect]
     Active Substance: OCTREOTIDE ACETATE
     Indication: PITUITARY TUMOUR
     Dosage: 40 MG, QMO (IN THE MORNING)
     Route: 030
  5. INSULIN NPH//INSULIN ISOPHANE BOVINE [Concomitant]
     Active Substance: INSULIN BEEF
     Indication: DIABETES MELLITUS
     Dosage: 40 U, QD
     Route: 058
  6. SPIRONOLACTONE. [Concomitant]
     Active Substance: SPIRONOLACTONE
     Indication: PRODUCT USED FOR UNKNOWN INDICATION
     Dosage: 50 MG, QD
     Route: 048
  7. LEVOTHYROXINE. [Concomitant]
     Active Substance: LEVOTHYROXINE
     Indication: PRODUCT USED FOR UNKNOWN INDICATION
     Dosage: UNK UNK, QD (IN THE MORNING)
     Route: 048
  8. HYDRALAZINE [Concomitant]
     Active Substance: HYDRALAZINE HYDROCHLORIDE
     Indication: HYPERTENSION
     Dosage: 50 MG, BID
     Route: 048
  9. FUROSEMIDE. [Concomitant]
     Active Substance: FUROSEMIDE
     Indication: PRODUCT USED FOR UNKNOWN INDICATION
     Dosage: 40 MG, UNK
     Route: 065
  10. HYDROCORTISONE. [Concomitant]
     Active Substance: HYDROCORTISONE
     Indication: PRODUCT USED FOR UNKNOWN INDICATION
     Dosage: 30 MG, QD (20 MG IN THE MORNING AND 10 MG IN THE EVENING
     Route: 048
  11. ATENOLOL. [Concomitant]
     Active Substance: ATENOLOL
     Indication: HYPERTENSION
     Dosage: 1 DF, QD (IN THE MORNING)
     Route: 048
  12. METFORMIN HYDROCHLORIDE. [Suspect]
     Active Substance: METFORMIN HYDROCHLORIDE
     Dosage: 500 MG, BID (1 TABLET IN THE MORNING AND 1 TABLET AT NIGHT)
     Route: 048
  13. IRBESARTAN. [Suspect]
     Active Substance: IRBESARTAN
     Indication: HYPERTENSION
     Dosage: 1 DF, BID (1 IN MORNING AND 1 AT NIGHT)
     Route: 048
  14. ENALAPRIL [Concomitant]
     Active Substance: ENALAPRIL
     Indication: PRODUCT USED FOR UNKNOWN INDICATION
     Dosage: 20 MG, BID
     Route: 048
  15. METFORMIN HYDROCHLORIDE. [Suspect]
     Active Substance: METFORMIN HYDROCHLORIDE
     Indication: DIABETES MELLITUS
     Dosage: 1000 MG, BID
     Route: 048
  16. INSULIN NPH//INSULIN ISOPHANE BOVINE [Concomitant]
     Active Substance: INSULIN BEEF
     Dosage: 20 U, QD
     Route: 058
  17. INSULIN CRYSTALINE [Concomitant]
     Active Substance: INSULIN PORK\INSULIN PURIFIED PORK
     Indication: DIABETES MELLITUS
     Dosage: 74 U, QD (TID 24 U/26U/24U)
     Route: 058
  18. METILDOPA [Concomitant]
     Active Substance: METHYLDOPA
     Dosage: 500 MG, BID (1 TABLET IN MORNING AND 1 AT NIGHT)
     Route: 048

REACTIONS (29)
  - Fistula [Recovered/Resolved]
  - Vaginal abscess [Recovering/Resolving]
  - Feeling abnormal [Unknown]
  - Pain [Unknown]
  - Memory impairment [Unknown]
  - Wrong technique in product usage process [Unknown]
  - Skin fissures [Recovered/Resolved]
  - Product storage error [Unknown]
  - Diarrhoea [Recovered/Resolved]
  - Neoplasm progression [Unknown]
  - Hyperglycaemia [Not Recovered/Not Resolved]
  - Arthropathy [Not Recovered/Not Resolved]
  - Blood growth hormone increased [Unknown]
  - Back pain [Not Recovered/Not Resolved]
  - Sinusitis [Recovered/Resolved]
  - Abscess limb [Unknown]
  - Abdominal abscess [Unknown]
  - Rhinorrhoea [Unknown]
  - Hypertension [Unknown]
  - Headache [Unknown]
  - Cholelithiasis [Not Recovered/Not Resolved]
  - Abdominal pain [Not Recovered/Not Resolved]
  - Malaise [Unknown]
  - Drug ineffective [Unknown]
  - Cerebrospinal fluid leakage [Recovered/Resolved]
  - Neoplasm [Unknown]
  - Weight increased [Unknown]
  - Abscess [Unknown]
  - Fatigue [Unknown]

NARRATIVE: CASE EVENT DATE: 20170301
